FAERS Safety Report 17910440 (Version 12)
Quarter: 2021Q2

REPORT INFORMATION
  Report Type: Spontaneous
  Country: CA (occurrence: CA)
  Receive Date: 20200617
  Receipt Date: 20210616
  Transmission Date: 20210717
  Serious: Yes (Other)
  Sender: FDA-Public Use
  Company Number: CA-CELLTRION INC.-2020CA023258

PATIENT

DRUGS (16)
  1. INFLECTRA [Suspect]
     Active Substance: INFLIXIMAB-DYYB
     Dosage: 300 MG Q 6WEEKS
     Route: 042
     Dates: start: 20200428
  2. INFLECTRA [Suspect]
     Active Substance: INFLIXIMAB-DYYB
     Dosage: 300 MG Q 6 WEEKS
     Route: 042
     Dates: start: 20210308
  3. AMOXI?CLAV [Concomitant]
     Active Substance: AMOXICILLIN\CLAVULANATE POTASSIUM
     Dosage: 500/125MG, 3X/DAY (FOR 7 DAYS)
     Route: 048
     Dates: start: 20200618, end: 20200625
  4. INFLECTRA [Suspect]
     Active Substance: INFLIXIMAB-DYYB
     Dosage: 300 MG Q 6 WEEKS
     Route: 042
     Dates: start: 20200924
  5. INFLECTRA [Suspect]
     Active Substance: INFLIXIMAB-DYYB
     Dosage: 300 MG Q 6 WEEKS
     Route: 042
     Dates: start: 20201106
  6. INFLECTRA [Suspect]
     Active Substance: INFLIXIMAB-DYYB
     Dosage: 300 MG, EVERY 6 WEEKS
     Route: 042
     Dates: start: 20200924
  7. INFLECTRA [Suspect]
     Active Substance: INFLIXIMAB-DYYB
     Dosage: 5 MG/KG( 329 MG)  Q 6 WEEKS
     Route: 042
     Dates: start: 20210420
  8. INFLECTRA [Suspect]
     Active Substance: INFLIXIMAB-DYYB
     Dosage: 300 MG Q 6 WEEKS
     Route: 042
     Dates: start: 20200428
  9. IMODIUM [Concomitant]
     Active Substance: LOPERAMIDE HYDROCHLORIDE
     Indication: CROHN^S DISEASE
     Dosage: 0.5 DF, 1X/DAY (1/2 TAB OD PRN PO)
     Route: 048
     Dates: start: 20201208
  10. INFLECTRA [Suspect]
     Active Substance: INFLIXIMAB-DYYB
     Indication: CROHN^S DISEASE
     Dosage: 300 MG Q 8 WEEKS
     Route: 042
     Dates: start: 20200304
  11. INFLECTRA [Suspect]
     Active Substance: INFLIXIMAB-DYYB
     Dosage: 300 MG Q 6 WEEKS
     Route: 042
     Dates: start: 20200304
  12. INFLECTRA [Suspect]
     Active Substance: INFLIXIMAB-DYYB
     Dosage: 300 MG, EVERY 6 WEEKS
     Route: 042
     Dates: start: 20200814
  13. INFLECTRA [Suspect]
     Active Substance: INFLIXIMAB-DYYB
     Dosage: 300 MG Q 6 WEEKS
     Route: 042
     Dates: start: 20201218
  14. INFLECTRA [Suspect]
     Active Substance: INFLIXIMAB-DYYB
     Dosage: 300 MG Q 6 WEEKS
     Route: 042
     Dates: start: 20210126
  15. INFLECTRA [Suspect]
     Active Substance: INFLIXIMAB-DYYB
     Dosage: 300 MG Q 6 WEEKS
     Dates: start: 20210601
  16. HYDROCORTISONE. [Concomitant]
     Active Substance: HYDROCORTISONE
     Indication: PREMEDICATION
     Dosage: 100 MG

REACTIONS (14)
  - Blood creatine increased [Recovered/Resolved]
  - Condition aggravated [Unknown]
  - Incorrect dose administered [Unknown]
  - Disease recurrence [Unknown]
  - Bowel movement irregularity [Recovering/Resolving]
  - Fistula [Recovering/Resolving]
  - Fatigue [Unknown]
  - Off label use [Unknown]
  - Drug ineffective [Unknown]
  - Renal disorder [Not Recovered/Not Resolved]
  - Skin lesion [Unknown]
  - Glomerular filtration rate decreased [Recovered/Resolved]
  - Condition aggravated [Unknown]
  - Off label use [Unknown]

NARRATIVE: CASE EVENT DATE: 20201218
